FAERS Safety Report 5691735-1 (Version None)
Quarter: 2008Q1

REPORT INFORMATION
  Report Type: 
  Country: None (occurrence: None)
  Receive Date: 20080331
  Receipt Date: 20080312
  Transmission Date: 20080703
  Serious: Yes (Hospitalization)
  Sender: FDA-Public Use
  Company Number: 2008-01052

PATIENT
  Age: 68 Year
  Sex: Male
  Weight: 81.5 kg

DRUGS (3)
  1. VELCADE [Suspect]
     Indication: MULTIPLE MYELOMA
     Dosage: 1.30 MG/M2 , INTRAVENOUS
     Route: 042
     Dates: start: 20080205, end: 20080304
  2. DOXIL [Suspect]
     Indication: MULTIPLE MYELOMA
     Dosage: 20.00 MG/M2, INTRAVENOUS
     Route: 042
     Dates: start: 20080205, end: 20080304
  3. THALIDOMIDE [Suspect]
     Indication: MULTIPLE MYELOMA
     Dosage: 200.00 MG, ORAL
     Route: 048
     Dates: start: 20080205, end: 20080304

REACTIONS (1)
  - CHEST PAIN [None]
